FAERS Safety Report 5965197-0 (Version None)
Quarter: 2008Q4

REPORT INFORMATION
  Report Type: 
  Country: None (occurrence: None)
  Receive Date: 20081125
  Receipt Date: 20081117
  Transmission Date: 20090506
  Serious: Yes (Other)
  Sender: FDA-Public Use
  Company Number: PT-ABBOTT-08P-130-0488131-00

PATIENT
  Sex: Male

DRUGS (4)
  1. RITONAVIR SOFT GELATIN CAPSULES [Suspect]
     Indication: HIV INFECTION
     Dates: start: 20071102
  2. ATAZANAVIR SULFATE [Suspect]
     Indication: HIV INFECTION
     Dates: start: 20071102
  3. TENOFOVIR [Suspect]
     Indication: HIV INFECTION
     Dates: start: 20071102
  4. EMTRICITABINE [Suspect]
     Indication: HIV INFECTION
     Dates: start: 20071102

REACTIONS (1)
  - CD4 LYMPHOCYTES DECREASED [None]
